FAERS Safety Report 8331041-X (Version None)
Quarter: 2012Q2

REPORT INFORMATION
  Report Type: 
  Country: None (occurrence: None)
  Receive Date: 20120502
  Receipt Date: 20120409
  Transmission Date: 20120825
  Serious: Yes (Hospitalization)
  Sender: FDA-Public Use
  Company Number: US-AMGEN-USASP2012015552

PATIENT
  Age: 61 Year
  Sex: Female
  Weight: 52 kg

DRUGS (6)
  1. LEFLUNOMIDE [Concomitant]
     Indication: RHEUMATOID ARTHRITIS
     Dosage: UNK UNK, QD
     Route: 048
  2. CLONAZEPAM [Concomitant]
     Indication: DEPRESSION
     Dosage: 1 MG, BID
     Route: 048
  3. ENBREL [Suspect]
     Dosage: 50 MG, QWK
     Dates: start: 20110801, end: 20120101
  4. SERTRALINE HYDROCHLORIDE [Concomitant]
     Indication: DEPRESSION
     Dosage: UNK UNK, QD
     Route: 048
  5. ENBREL [Suspect]
     Indication: RHEUMATOID ARTHRITIS
     Dosage: 50 MG, QWK
     Route: 058
     Dates: start: 20110715, end: 20120130
  6. BUPROPION HCL [Concomitant]
     Indication: DEPRESSION
     Dosage: UNK UNK, QD
     Route: 048

REACTIONS (3)
  - OEDEMA PERIPHERAL [None]
  - PNEUMONIA [None]
  - PAIN IN EXTREMITY [None]
